FAERS Safety Report 9465233 (Version 1)
Quarter: 2013Q3

REPORT INFORMATION
  Report Type: Spontaneous
  Country: US (occurrence: US)
  Receive Date: 20130819
  Receipt Date: 20130819
  Transmission Date: 20140515
  Serious: Yes (Hospitalization, Other)
  Sender: FDA-Public Use
  Company Number: US-RB-057289-13

PATIENT
  Age: 26 Year
  Sex: Female

DRUGS (3)
  1. SUBOXONE FILM [Suspect]
     Indication: DRUG DEPENDENCE
     Dosage: SUBOXONE FILM; DOSING DETAILS UNKNOWN
     Route: 060
     Dates: start: 201301, end: 201304
  2. BUPRENORPHINE GENERIC [Suspect]
     Indication: DRUG DEPENDENCE
     Dosage: DOSING DETAILS UNKNOWN
     Route: 060
     Dates: start: 20130404
  3. NICOTINE [Suspect]
     Indication: NICOTINE DEPENDENCE
     Dosage: DOSAGE: 20 CIGARETTES DAILY
     Route: 055
     Dates: end: 201303

REACTIONS (2)
  - Exposure during pregnancy [Not Recovered/Not Resolved]
  - Gun shot wound [Recovered/Resolved]
